APPROVED DRUG PRODUCT: RISPERDAL
Active Ingredient: RISPERIDONE
Strength: 1MG **Federal Register determination that product was not discontinued or withdrawn for safety or effectiveness reasons**
Dosage Form/Route: TABLET, ORALLY DISINTEGRATING;ORAL
Application: N021444 | Product #002
Applicant: JANSSEN PHARMACEUTICALS INC
Approved: Apr 2, 2003 | RLD: Yes | RS: No | Type: DISCN